FAERS Safety Report 11211358 (Version 1)
Quarter: 2015Q2

REPORT INFORMATION
  Report Type: Spontaneous
  Country: TW (occurrence: TW)
  Receive Date: 20150623
  Receipt Date: 20150623
  Transmission Date: 20150821
  Serious: Yes (Hospitalization, Other)
  Sender: FDA-Public Use
  Company Number: TW-PAR PHARMACEUTICAL, INC-2015SCPR014066

PATIENT

DRUGS (1)
  1. ALPRAZOLAM. [Suspect]
     Active Substance: ALPRAZOLAM
     Indication: PRODUCT USED FOR UNKNOWN INDICATION
     Dosage: 30 DF, UNKNOWN
     Route: 065

REACTIONS (5)
  - Sinus tachycardia [Recovered/Resolved]
  - Coma [Recovered/Resolved]
  - Overdose [Unknown]
  - Suicidal ideation [Unknown]
  - Pulmonary embolism [Recovered/Resolved]
